FAERS Safety Report 7249372-3 (Version None)
Quarter: 2011Q1

REPORT INFORMATION
  Report Type: 
  Country: None (occurrence: None)
  Receive Date: 20110128
  Receipt Date: 20101214
  Transmission Date: 20110831
  Serious: Yes (Other)
  Sender: FDA-Public Use
  Company Number: US-BAYER-2010-005545

PATIENT
  Sex: Female

DRUGS (4)
  1. NEXIUM [Concomitant]
  2. CIPRO [Suspect]
     Indication: CYSTITIS
     Dosage: 500 MG, BID
     Route: 048
  3. SYNTHROID [Concomitant]
  4. XANAX [Concomitant]

REACTIONS (3)
  - SWELLING FACE [None]
  - SWOLLEN TONGUE [None]
  - HYPERSENSITIVITY [None]
